FAERS Safety Report 18963856 (Version 2)
Quarter: 2021Q1

REPORT INFORMATION
  Report Type: Report from Study
  Country: US (occurrence: US)
  Receive Date: 20210303
  Receipt Date: 20210316
  Transmission Date: 20210420
  Serious: No
  Sender: FDA-Public Use
  Company Number: US-AGIOS-2102US02549

PATIENT

DRUGS (5)
  1. KEPPRA [Concomitant]
     Active Substance: LEVETIRACETAM
     Indication: SEIZURE
  2. TIBSOVO [Suspect]
     Active Substance: IVOSIDENIB
     Indication: OLIGOASTROCYTOMA
     Dosage: 500 MILLIGRAM (TWO 250MG TABLETS), QD
     Route: 048
     Dates: start: 20210219
  3. PROPECIA [Concomitant]
     Active Substance: FINASTERIDE
  4. NIZORAL A?D [Concomitant]
     Active Substance: KETOCONAZOLE
  5. ATIVAN [Concomitant]
     Active Substance: LORAZEPAM
     Indication: SEIZURE

REACTIONS (2)
  - Off label use [Not Recovered/Not Resolved]
  - Fatigue [Unknown]

NARRATIVE: CASE EVENT DATE: 20210219
